FAERS Safety Report 9840960 (Version 2)
Quarter: 2014Q2

REPORT INFORMATION
  Report Type: Spontaneous
  Country: US (occurrence: None)
  Receive Date: 20131212
  Receipt Date: 20140604
  Transmission Date: 20141212
  Serious: Yes (Hospitalization)
  Sender: FDA-Public Use
  Company Number: 20130429CINRY4231

PATIENT
  Age: 36 Year
  Sex: Female

DRUGS (2)
  1. CINRYZE [Suspect]
     Indication: HEREDITARY ANGIOEDEMA
     Dosage: (1500 UNIT, 1 IN 2 D), INTRAVENOUS
     Route: 042
     Dates: start: 20100902
  2. CINRYZE [Suspect]
     Indication: PROPHYLAXIS
     Dosage: (1500 UNIT, 1 IN 2 D), INTRAVENOUS
     Route: 042
     Dates: start: 20100902

REACTIONS (3)
  - Hereditary angioedema [None]
  - Swelling [None]
  - Off label use [None]
